FAERS Safety Report 8022741-X (Version None)
Quarter: 2012Q1

REPORT INFORMATION
  Report Type: 
  Country: None (occurrence: None)
  Receive Date: 20120104
  Receipt Date: 20120103
  Transmission Date: 20120608
  Serious: Yes (Hospitalization)
  Sender: FDA-Public Use
  Company Number: US-ROCHE-1027019

PATIENT
  Sex: Female
  Weight: 38.59 kg

DRUGS (10)
  1. XELODA [Suspect]
     Route: 048
     Dates: start: 20111130, end: 20111208
  2. ZOFRAN [Concomitant]
  3. OXYCODONE HCL [Concomitant]
  4. ALBUTEROL [Concomitant]
  5. XELODA [Suspect]
     Indication: PANCREATIC CARCINOMA
     Route: 048
     Dates: start: 20111109, end: 20111116
  6. SENOKOT [Concomitant]
  7. GEMZAR [Concomitant]
  8. FENTANYL [Concomitant]
  9. ATIVAN [Concomitant]
  10. OXYGEN (NIGHT) [Concomitant]

REACTIONS (1)
  - LABORATORY TEST ABNORMAL [None]
